FAERS Safety Report 8496907-9 (Version None)
Quarter: 2012Q3

REPORT INFORMATION
  Report Type: 
  Country: None (occurrence: None)
  Receive Date: 20120709
  Receipt Date: 20120628
  Transmission Date: 20120928
  Serious: Yes (Hospitalization)
  Sender: FDA-Public Use
  Company Number: US-ELI_LILLY_AND_COMPANY-US201207000778

PATIENT
  Sex: Female

DRUGS (11)
  1. SYNTHROID [Concomitant]
     Dosage: 50 MG, UNKNOWN
  2. NORCO [Concomitant]
     Dosage: UNK
  3. FORTEO [Suspect]
     Indication: OSTEOPOROSIS
     Dosage: 20 UG, QD
  4. ATENOLOL [Concomitant]
     Dosage: 100 MG, UNKNOWN
  5. PREDNISONE [Concomitant]
     Dosage: 6 MG, UNKNOWN
  6. ARAVA [Concomitant]
     Dosage: 10 MG, UNKNOWN
  7. LISINOPRIL [Concomitant]
     Dosage: 10 MG, UNKNOWN
  8. VENTOLIN HFA [Concomitant]
     Dosage: UNK, PRN
  9. SERTRALINE HYDROCHLORIDE [Concomitant]
     Dosage: 100 MG, UNKNOWN
  10. FORTEO [Suspect]
     Dosage: 20 UG, QD
  11. ASMANEX TWISTHALER [Concomitant]
     Dosage: 15 UG, UNKNOWN

REACTIONS (2)
  - DENTAL CARE [None]
  - INTESTINAL HAEMORRHAGE [None]
